FAERS Safety Report 12719187 (Version 1)
Quarter: 2016Q3

REPORT INFORMATION
  Report Type: Spontaneous
  Country: US (occurrence: US)
  Receive Date: 20160907
  Receipt Date: 20160907
  Transmission Date: 20161109
  Serious: No
  Sender: FDA-Public Use
  Company Number: US-JNJFOC-20160720128

PATIENT
  Sex: Female
  Weight: 77.11 kg

DRUGS (1)
  1. DURAGESIC [Suspect]
     Active Substance: FENTANYL
     Indication: BACK PAIN
     Route: 062
     Dates: start: 2004

REACTIONS (3)
  - Wrong technique in product usage process [Unknown]
  - Product quality issue [Unknown]
  - Drug dose omission [Unknown]
